FAERS Safety Report 22588281 (Version 1)
Quarter: 2023Q2

REPORT INFORMATION
  Report Type: Spontaneous
  Country: US (occurrence: US)
  Receive Date: 20230612
  Receipt Date: 20230612
  Transmission Date: 20230722
  Serious: Yes (Death, Life-Threatening, Hospitalization, Other)
  Sender: FDA-Public Use
  Company Number: US-ALKEM LABORATORIES LIMITED-US-ALKEM-2023-06204

PATIENT
  Age: 13 Year
  Sex: Male
  Weight: 55 kg

DRUGS (1)
  1. COLCHICINE [Suspect]
     Active Substance: COLCHICINE
     Indication: Product used for unknown indication
     Dosage: UNK
     Route: 048

REACTIONS (20)
  - Myocardial infarction [Fatal]
  - Hepatic necrosis [Fatal]
  - Cardiogenic shock [Fatal]
  - Cardiac arrest [Fatal]
  - Pancytopenia [Fatal]
  - Leukocytosis [Fatal]
  - Diarrhoea [Fatal]
  - Nausea [Fatal]
  - Vomiting [Fatal]
  - Generalised oedema [Fatal]
  - Abdominal pain [Fatal]
  - Sinus tachycardia [Fatal]
  - Electrocardiogram QT prolonged [Fatal]
  - Blood lactic acid increased [Fatal]
  - Mental disorder [Fatal]
  - Troponin I increased [Fatal]
  - Multiple organ dysfunction syndrome [Fatal]
  - Acute respiratory failure [Fatal]
  - Overdose [Fatal]
  - Toxicity to various agents [Fatal]
